FAERS Safety Report 25940285 (Version 5)
Quarter: 2025Q4

REPORT INFORMATION
  Report Type: Report from Study
  Country: CA (occurrence: CA)
  Receive Date: 20251020
  Receipt Date: 20251226
  Transmission Date: 20260117
  Serious: Yes (Other)
  Sender: CELLTRION
  Company Number: CA-CELLTRION INC.-2025CA033701

PATIENT

DRUGS (3)
  1. INFLIXIMAB-DYYB [Suspect]
     Active Substance: INFLIXIMAB-DYYB
     Indication: Crohn^s disease
     Dosage: 900 MG EVERY 6 WEEKS (MAINTENANCE)
     Route: 042
     Dates: start: 20250910
  2. INFLIXIMAB-DYYB [Suspect]
     Active Substance: INFLIXIMAB-DYYB
     Dosage: 900 MG EVERY 6 WEEKS (MAINTENANCE)
     Route: 042
     Dates: start: 20251103
  3. INFLIXIMAB-DYYB [Suspect]
     Active Substance: INFLIXIMAB-DYYB
     Dosage: 900 MG EVERY 6 WEEKS (MAINTENANCE)
     Route: 042
     Dates: start: 20251216

REACTIONS (9)
  - Pyoderma gangrenosum [Unknown]
  - Weight decreased [Unknown]
  - Skin ulcer [Unknown]
  - C-reactive protein increased [Unknown]
  - Decreased appetite [Unknown]
  - Faecal calprotectin increased [Unknown]
  - Off label use [Unknown]
  - Inappropriate schedule of product administration [Recovered/Resolved]
  - Therapeutic response decreased [Unknown]

NARRATIVE: CASE EVENT DATE: 20250101
